FAERS Safety Report 4467102-5 (Version None)
Quarter: 2004Q4

REPORT INFORMATION
  Report Type: 
  Country: None (occurrence: None)
  Receive Date: 20041004
  Receipt Date: 20041004
  Transmission Date: 20050328
  Serious: No
  Sender: FDA-Public Use
  Company Number: None

PATIENT
  Age: 49 Year
  Sex: Male
  Weight: 85.7298 kg

DRUGS (1)
  1. ZOCOR [Suspect]
     Dosage: 1 /DAY BY MOUTH
     Dates: start: 20030915

REACTIONS (16)
  - AMNESIA [None]
  - ARTHRALGIA [None]
  - ASTHENIA [None]
  - CHOKING [None]
  - COUGH [None]
  - DISTURBANCE IN ATTENTION [None]
  - DIZZINESS [None]
  - DYSPNOEA [None]
  - FATIGUE [None]
  - IMPAIRED WORK ABILITY [None]
  - JOINT CREPITATION [None]
  - MARITAL PROBLEM [None]
  - MOBILITY DECREASED [None]
  - MYALGIA [None]
  - OEDEMA PERIPHERAL [None]
  - SLEEP DISORDER [None]
